FAERS Safety Report 5892544-0 (Version None)
Quarter: 2008Q3

REPORT INFORMATION
  Report Type: 
  Country: None (occurrence: None)
  Receive Date: 20080919
  Receipt Date: 20080909
  Transmission Date: 20090109
  Serious: Yes (Other)
  Sender: FDA-Public Use
  Company Number: PAR_02340_2008

PATIENT
  Sex: Female

DRUGS (13)
  1. MEGESTROL ACETATE [Suspect]
     Indication: DECREASED APPETITE
     Dosage: (40 MG BID ORAL)
     Route: 048
     Dates: start: 20080702, end: 20080708
  2. FOSAMAX [Concomitant]
  3. NORVASC [Concomitant]
  4. DULCOLAX /00064401/ [Concomitant]
  5. COLACE [Concomitant]
  6. FENTANYL [Concomitant]
  7. FOLIC ACID [Concomitant]
  8. REGLAN [Concomitant]
  9. METOPROLOL TARTRATE [Concomitant]
  10. OSCAL /00108001/ [Concomitant]
  11. PROTONIX /01263201/ [Concomitant]
  12. ZOCOR [Concomitant]
  13. MULTI-VITAMINS [Concomitant]

REACTIONS (2)
  - DEEP VEIN THROMBOSIS [None]
  - DYSPNOEA [None]
